FAERS Safety Report 19643056 (Version 1)
Quarter: 2021Q3

REPORT INFORMATION
  Report Type: Spontaneous
  Country: DE (occurrence: DE)
  Receive Date: 20210730
  Receipt Date: 20210730
  Transmission Date: 20211014
  Serious: Yes (Death, Other)
  Sender: FDA-Public Use
  Company Number: DE-TEVA-2021-DE-1935921

PATIENT
  Age: 78 Year
  Sex: Female
  Weight: 55 kg

DRUGS (5)
  1. METOPROLOL 100 [Concomitant]
     Active Substance: METOPROLOL
     Indication: ATRIAL FIBRILLATION
     Dosage: 1?0?1:UNIT DOSE:100MILLIGRAM
  2. DIGITOXIN [Concomitant]
     Active Substance: DIGITOXIN
     Indication: ATRIAL FIBRILLATION
  3. AMIODARON [Suspect]
     Active Substance: AMIODARONE
     Indication: ATRIAL FIBRILLATION
     Dosage: 900MG AS A PERFUSOR RUNNING RATE 2ML / H
     Route: 042
     Dates: start: 20210709, end: 20210710
  4. AMIODARON [Suspect]
     Active Substance: AMIODARONE
     Indication: ATRIAL FIBRILLATION
  5. ELIQUIS  2,5 MG [Concomitant]
     Indication: ATRIAL FIBRILLATION
     Dosage: 5 MILLIGRAM DAILY; 1?0?1

REACTIONS (2)
  - General physical health deterioration [Unknown]
  - Hepatic failure [Fatal]

NARRATIVE: CASE EVENT DATE: 202107
